FAERS Safety Report 11326447 (Version 1)
Quarter: 2015Q3

REPORT INFORMATION
  Report Type: Spontaneous
  Country: NL (occurrence: None)
  Receive Date: 20150729
  Receipt Date: 20150729
  Transmission Date: 20151125
  Serious: No
  Sender: FDA-Public Use
  Company Number: NL-LHC-2015095

PATIENT
  Age: 60 Year
  Sex: Female

DRUGS (1)
  1. OXYGEN (GENERIC) (OXYGEN) (INHALATION GAS) (OXYGEN) (VERUM) [Suspect]
     Active Substance: OXYGEN
     Indication: CHRONIC OBSTRUCTIVE PULMONARY DISEASE
     Dosage: 4 LITER P/M 24 HOURS/ DAY
     Route: 055
     Dates: start: 20111110

REACTIONS (2)
  - Headache [None]
  - Device issue [None]

NARRATIVE: CASE EVENT DATE: 201503
